FAERS Safety Report 17178914 (Version 1)
Quarter: 2019Q4

REPORT INFORMATION
  Report Type: Spontaneous
  Country: US (occurrence: US)
  Receive Date: 20191219
  Receipt Date: 20191219
  Transmission Date: 20200122
  Serious: Yes (Hospitalization, Other)
  Sender: FDA-Public Use
  Company Number: US-ABBVIE-19K-163-3194563-00

PATIENT
  Age: 45 Year
  Sex: Female
  Weight: 44.49 kg

DRUGS (1)
  1. HUMIRA [Suspect]
     Active Substance: ADALIMUMAB
     Indication: CROHN^S DISEASE
     Route: 058

REACTIONS (17)
  - Skin laceration [Recovered/Resolved with Sequelae]
  - Scar [Not Recovered/Not Resolved]
  - Device issue [Unknown]
  - Nasopharyngitis [Unknown]
  - Eye contusion [Recovered/Resolved]
  - Vision blurred [Recovered/Resolved]
  - Crohn^s disease [Unknown]
  - Hypertension [Recovered/Resolved]
  - Cough [Unknown]
  - Feeling abnormal [Recovered/Resolved]
  - Jaw fracture [Recovering/Resolving]
  - Dizziness [Recovered/Resolved]
  - Hypotension [Recovered/Resolved]
  - Facial bones fracture [Recovering/Resolving]
  - Vomiting [Recovered/Resolved]
  - Contusion [Recovered/Resolved]
  - Fall [Recovered/Resolved]

NARRATIVE: CASE EVENT DATE: 201907
